FAERS Safety Report 4622213-6 (Version None)
Quarter: 2005Q1

REPORT INFORMATION
  Report Type: 
  Country: None (occurrence: None)
  Receive Date: 20050322
  Receipt Date: 20050322
  Transmission Date: 20050727
  Serious: Yes (Other)
  Sender: FDA-Public Use
  Company Number: None

PATIENT
  Age: 63 Year
  Sex: Male
  Weight: 102.0593 kg

DRUGS (9)
  1. NAPROXEN [Suspect]
     Indication: MUSCLE SPASMS
     Dosage: 500MG TWICE DAILY ORAL
     Route: 048
     Dates: start: 20050131, end: 20050310
  2. NAPROXEN [Suspect]
     Indication: SCIATICA
     Dosage: 500MG TWICE DAILY ORAL
     Route: 048
     Dates: start: 20050131, end: 20050310
  3. NAPROXEN [Suspect]
     Indication: MUSCLE SPASMS
     Dosage: 500MG TWICE DAILY ORAL
     Route: 048
     Dates: start: 20050219, end: 20050310
  4. NAPROXEN [Suspect]
     Indication: SCIATICA
     Dosage: 500MG TWICE DAILY ORAL
     Route: 048
     Dates: start: 20050219, end: 20050310
  5. CRESTOR [Concomitant]
  6. ATTENOLOL [Concomitant]
  7. QUININE SULFATE [Concomitant]
  8. GLYBURIDE [Concomitant]
  9. TAMAZAPAM ATTENOLOL [Concomitant]

REACTIONS (14)
  - ASTHMA [None]
  - BALANCE DISORDER [None]
  - CONDITION AGGRAVATED [None]
  - DIZZINESS [None]
  - DYSPNOEA [None]
  - FAECES DISCOLOURED [None]
  - HAEMATOCHEZIA [None]
  - KIDNEY ENLARGEMENT [None]
  - MICTURITION DISORDER [None]
  - MOVEMENT DISORDER [None]
  - MUSCLE SPASMS [None]
  - NAUSEA [None]
  - PAIN IN EXTREMITY [None]
  - URETHRAL DISORDER [None]
